FAERS Safety Report 10205568 (Version 1)
Quarter: 2014Q2

REPORT INFORMATION
  Report Type: Spontaneous
  Country: US (occurrence: US)
  Receive Date: 20140529
  Receipt Date: 20140529
  Transmission Date: 20141212
  Serious: No
  Sender: FDA-Public Use
  Company Number: US-GILEAD-2014-0103079

PATIENT
  Sex: Female

DRUGS (3)
  1. SOVALDI [Suspect]
     Indication: PRODUCT USED FOR UNKNOWN INDICATION
     Dosage: UNK
     Route: 050
     Dates: start: 201404
  2. RIBAVIRIN [Concomitant]
  3. PEGINTERFERON [Concomitant]

REACTIONS (2)
  - Exposure via body fluid [Unknown]
  - Pregnancy [Not Recovered/Not Resolved]
